FAERS Safety Report 5796965-6 (Version None)
Quarter: 2008Q3

REPORT INFORMATION
  Report Type: 
  Country: None (occurrence: None)
  Receive Date: 20080701
  Receipt Date: 20080624
  Transmission Date: 20090109
  Serious: Yes (Other)
  Sender: FDA-Public Use
  Company Number: US-WYE-H04726008

PATIENT
  Sex: Female
  Weight: 75.01 kg

DRUGS (5)
  1. CONJUGATED ESTROGENS 0.45MG/MEDROXYPROGESTERONE ACETATE 1.5MG [Suspect]
     Indication: MENOPAUSAL SYMPTOMS
     Dosage: 0.45 MG/1.5MG CAPSULE DAILY
     Route: 048
     Dates: start: 20060520, end: 20080502
  2. CONJUGATED ESTROGENS 0.45MG/MEDROXYPROGESTERONE ACETATE 1.5MG [Suspect]
     Indication: PROPHYLAXIS
  3. CONJUGATED ESTROGENS 0.45MG/MEDROXYPROGESTERONE ACETATE 1.5MG [Suspect]
     Indication: ENDOMETRIAL HYPERPLASIA
  4. CONJUGATED ESTROGENS 0.45MG/MEDROXYPROGESTERONE ACETATE 1.5MG [Suspect]
     Indication: OSTEOPOROSIS PROPHYLAXIS
  5. LISINOPRIL [Concomitant]
     Indication: HYPERTENSION
     Dosage: 20/12.5 OR 20/25 DAILY
     Route: 048
     Dates: start: 20040601

REACTIONS (1)
  - MAJOR DEPRESSION [None]
